FAERS Safety Report 12356443 (Version 1)
Quarter: 2016Q2

REPORT INFORMATION
  Report Type: Spontaneous
  Country: US (occurrence: US)
  Receive Date: 20160511
  Receipt Date: 20160511
  Transmission Date: 20160815
  Serious: Yes (Other)
  Sender: FDA-Public Use
  Company Number: US-009507513-1605USA004475

PATIENT
  Sex: Female

DRUGS (1)
  1. IMPLANON [Suspect]
     Active Substance: ETONOGESTREL
     Indication: CONTRACEPTION
     Dosage: UNK
     Route: 059
     Dates: start: 20111202

REACTIONS (10)
  - Device dislocation [Unknown]
  - Unintended pregnancy [Recovered/Resolved]
  - Drug dose omission [Unknown]
  - Device defective [Unknown]
  - Device difficult to use [Not Recovered/Not Resolved]
  - Nerve injury [Unknown]
  - Surgery [Not Recovered/Not Resolved]
  - Pregnancy with implant contraceptive [Recovered/Resolved]
  - Complication associated with device [Not Recovered/Not Resolved]
  - Vascular injury [Unknown]

NARRATIVE: CASE EVENT DATE: 2014
